APPROVED DRUG PRODUCT: FENTORA
Active Ingredient: FENTANYL CITRATE
Strength: EQ 0.1MG BASE
Dosage Form/Route: TABLET;BUCCAL, SUBLINGUAL
Application: N021947 | Product #001
Applicant: CEPHALON LLC
Approved: Sep 25, 2006 | RLD: Yes | RS: No | Type: DISCN

PATENTS:
Patent 7862833 | Expires: Jun 15, 2028
Patent 7862832 | Expires: Jun 15, 2028